FAERS Safety Report 18409599 (Version 5)
Quarter: 2020Q4

REPORT INFORMATION
  Report Type: Spontaneous
  Country: DE (occurrence: DE)
  Receive Date: 20201021
  Receipt Date: 20201218
  Transmission Date: 20210114
  Serious: Yes (Hospitalization, Other)
  Sender: FDA-Public Use
  Company Number: DE-GLAXOSMITHKLINE-DE2020204792

PATIENT
  Age: 76 Year
  Sex: Female
  Weight: 43.5 kg

DRUGS (8)
  1. SHINGRIX [Suspect]
     Active Substance: RECOMBINANT VARICELLA ZOSTER VIRUS (VZV) GLYCOPROTEIN E
     Indication: PROPHYLAXIS
     Route: 030
     Dates: start: 20200826
  2. ATORVASTATIN [Concomitant]
     Active Substance: ATORVASTATIN
     Indication: HYPERTENSION
     Dosage: UNK
     Dates: start: 2017
  3. CALCIUM [Concomitant]
     Active Substance: CALCIUM
     Indication: HYPERTENSION
     Dosage: UNK
  4. ACETYLSALICYLIC ACID [Concomitant]
     Active Substance: ASPIRIN
     Indication: CORONARY ARTERY OCCLUSION
     Dosage: UNK
     Dates: start: 2017
  5. ALENDRONIC ACID [Concomitant]
     Active Substance: ALENDRONIC ACID
     Indication: PROPHYLAXIS
     Dosage: UNK
     Route: 065
  6. DICLOFENAC [Suspect]
     Active Substance: DICLOFENAC
     Indication: HEADACHE
     Dosage: UNK
     Route: 065
     Dates: start: 20200903
  7. EXEMESTANE. [Concomitant]
     Active Substance: EXEMESTANE
     Indication: BREAST CANCER
     Dosage: UNK
     Dates: start: 201605
  8. VITAMIN D [Concomitant]
     Active Substance: VITAMIN D NOS
     Indication: HYPERTENSION
     Dosage: UNK

REACTIONS (14)
  - Borrelia infection [Recovered/Resolved]
  - Sleep disorder [Recovered/Resolved]
  - Pain in jaw [Recovered/Resolved]
  - Pain [Not Recovered/Not Resolved]
  - Photophobia [Recovered/Resolved]
  - Hypertension [Recovered/Resolved]
  - Hepatic enzyme increased [Not Recovered/Not Resolved]
  - Drug ineffective [Recovered/Resolved]
  - Oropharyngeal pain [Recovered/Resolved]
  - Inflammation [Recovered/Resolved]
  - Nausea [Recovered/Resolved]
  - Musculoskeletal discomfort [Recovered/Resolved]
  - Encephalitis [Recovered/Resolved]
  - Tension headache [Not Recovered/Not Resolved]

NARRATIVE: CASE EVENT DATE: 202009
